FAERS Safety Report 4589209-4 (Version None)
Quarter: 2005Q1

REPORT INFORMATION
  Report Type: 
  Country: None (occurrence: None)
  Receive Date: 20050216
  Receipt Date: 20050216
  Transmission Date: 20050727
  Serious: Yes (Life-Threatening, Disabling)
  Sender: FDA-Public Use
  Company Number: None

PATIENT
  Age: 43 Year
  Sex: Male
  Weight: 88.4514 kg

DRUGS (1)
  1. CRESTOR [Suspect]
     Dosage: 20MG (1 PER DAY @ NITE)
     Dates: start: 20040201, end: 20050210

REACTIONS (4)
  - ASTHENIA [None]
  - BLOOD CREATINE PHOSPHOKINASE INCREASED [None]
  - LABORATORY TEST ABNORMAL [None]
  - MYALGIA [None]
